FAERS Safety Report 6790952-7 (Version None)
Quarter: 2010Q2

REPORT INFORMATION
  Report Type: 
  Country: None (occurrence: None)
  Receive Date: 20100624
  Receipt Date: 20100616
  Transmission Date: 20101027
  Serious: Yes (Other)
  Sender: FDA-Public Use
  Company Number: BR-AMGEN-QUU419878

PATIENT

DRUGS (3)
  1. ENBREL [Suspect]
     Indication: ANKYLOSING SPONDYLITIS
     Dosage: UNKNOWN
     Route: 058
  2. PREDNISONE [Concomitant]
     Dosage: UNKNOWN
  3. SULFADIAZINE [Concomitant]
     Dosage: UNKNOWN

REACTIONS (1)
  - RENAL FAILURE [None]
